FAERS Safety Report 25866318 (Version 5)
Quarter: 2025Q4

REPORT INFORMATION
  Report Type: Report from Study
  Country: EU (occurrence: EU)
  Receive Date: 20250930
  Receipt Date: 20251103
  Transmission Date: 20260118
  Serious: Yes (Hospitalization, Other)
  Sender: ABBVIE
  Company Number: EU-ABBVIE-6468183

PATIENT
  Age: 74 Year
  Sex: Male
  Weight: 77 kg

DRUGS (2)
  1. CARBIDOPA\LEVODOPA [Suspect]
     Active Substance: CARBIDOPA\LEVODOPA
     Indication: Parkinson^s disease
     Route: 050
     Dates: start: 20220120
  2. CARBIDOPA\LEVODOPA [Suspect]
     Active Substance: CARBIDOPA\LEVODOPA
     Route: 050

REACTIONS (15)
  - Epilepsy [Recovered/Resolved]
  - Device dislocation [Unknown]
  - Device occlusion [Unknown]
  - Epilepsy [Recovered/Resolved]
  - Dyspnoea [Recovered/Resolved]
  - Hypophagia [Not Recovered/Not Resolved]
  - Decreased appetite [Recovered/Resolved]
  - Condition aggravated [Unknown]
  - Device issue [Unknown]
  - Loss of consciousness [Recovered/Resolved]
  - Agitation [Recovered/Resolved]
  - Intentional medical device removal by patient [Unknown]
  - Musculoskeletal stiffness [Recovered/Resolved]
  - Off label use [Not Recovered/Not Resolved]
  - Weight decreased [Not Recovered/Not Resolved]

NARRATIVE: CASE EVENT DATE: 20250923
